FAERS Safety Report 4902535-1 (Version None)
Quarter: 2006Q1

REPORT INFORMATION
  Report Type: 
  Country: None (occurrence: None)
  Receive Date: 20060202
  Receipt Date: 20060125
  Transmission Date: 20060701
  Serious: Yes (Other)
  Sender: FDA-Public Use
  Company Number: 2005-136338-NL

PATIENT
  Age: 21 Year
  Sex: Male

DRUGS (4)
  1. MIRTAZAPINE [Suspect]
     Indication: DEPRESSION
     Dosage: 15 MG/DF
     Route: 048
     Dates: start: 20051222, end: 20051229
  2. PROCYCLIDINE HYDROCHLORIDE 2MG TAB [Concomitant]
  3. LORAZEPAM [Concomitant]
  4. RISPERIDONE [Suspect]
     Indication: AGITATION
     Dosage: 2MG/DF
     Route: 048
     Dates: start: 20051222, end: 20051227

REACTIONS (4)
  - ALANINE AMINOTRANSFERASE INCREASED [None]
  - BLOOD CREATINE PHOSPHOKINASE MB INCREASED [None]
  - C-REACTIVE PROTEIN INCREASED [None]
  - NEUROLEPTIC MALIGNANT SYNDROME [None]
